FAERS Safety Report 8494119-6 (Version None)
Quarter: 2012Q3

REPORT INFORMATION
  Report Type: 
  Country: None (occurrence: None)
  Receive Date: 20120702
  Receipt Date: 20120702
  Transmission Date: 20120928
  Serious: Yes (Hospitalization)
  Sender: FDA-Public Use
  Company Number: None

PATIENT
  Age: 84 Year
  Sex: Female
  Weight: 58.0604 kg

DRUGS (1)
  1. AMLODIPINE BESYLATE [Suspect]
     Indication: HYPERTENSION
     Dosage: 1 TABLET BY MOUTH DAILY
     Route: 048
     Dates: start: 20120525, end: 20120531

REACTIONS (7)
  - ERYTHEMA [None]
  - BLOOD PRESSURE INCREASED [None]
  - FEELING HOT [None]
  - HEADACHE [None]
  - JOINT SWELLING [None]
  - OEDEMA PERIPHERAL [None]
  - DYSPNOEA [None]
